FAERS Safety Report 5337873-4 (Version None)
Quarter: 2007Q2

REPORT INFORMATION
  Report Type: 
  Country: None (occurrence: None)
  Receive Date: 20070309
  Receipt Date: 20060406
  Transmission Date: 20071010
  Serious: Yes (Other)
  Sender: FDA-Public Use
  Company Number: 2006-01378

PATIENT
  Age: 42 Year
  Sex: Female
  Weight: 79.4 kg

DRUGS (5)
  1. PROMETHAZINE HCL [Suspect]
     Indication: VOMITING
     Dosage: 25 MG, SINGLE, INTRAMUSCULAR
     Route: 030
     Dates: start: 20060324, end: 20060324
  2. CARDIZEM [Concomitant]
  3. COZAAR [Concomitant]
  4. LISINOPRIL [Concomitant]
  5. DILANTIN [Concomitant]

REACTIONS (2)
  - AMNESIA [None]
  - CONVULSION [None]
